FAERS Safety Report 12582228 (Version 1)
Quarter: 2016Q3

REPORT INFORMATION
  Report Type: Spontaneous
  Country: US (occurrence: None)
  Receive Date: 20160721
  Receipt Date: 20160721
  Transmission Date: 20161109
  Serious: Yes (Disabling)
  Sender: FDA-Public Use
  Company Number: None

PATIENT
  Age: 51 Year
  Sex: Female
  Weight: 68.04 kg

DRUGS (4)
  1. CA MAG ZINC SUPPLEMENT [Concomitant]
  2. CIPRO [Suspect]
     Active Substance: CIPROFLOXACIN HYDROCHLORIDE
     Indication: CYSTITIS
  3. TUMERIC [Concomitant]
     Active Substance: TURMERIC
  4. MULTIVITAMIN [Concomitant]
     Active Substance: VITAMINS

REACTIONS (3)
  - Pain in extremity [None]
  - Polyneuropathy idiopathic progressive [None]
  - Asthenia [None]

NARRATIVE: CASE EVENT DATE: 20150515
